FAERS Safety Report 6293348-X (Version None)
Quarter: 2009Q3

REPORT INFORMATION
  Report Type: 
  Country: None (occurrence: None)
  Receive Date: 20090731
  Receipt Date: 20090724
  Transmission Date: 20100115
  Serious: Yes (Death, Life-Threatening, Hospitalization)
  Sender: FDA-Public Use
  Company Number: PHHO2005AU14422

PATIENT
  Sex: Female
  Weight: 40 kg

DRUGS (1)
  1. AMN107 AMN+CAP [Suspect]
     Indication: CHRONIC MYELOID LEUKAEMIA
     Dosage: 400 MG, BID
     Route: 048
     Dates: start: 20050802, end: 20051024

REACTIONS (25)
  - ABDOMINAL PAIN [None]
  - ABDOMINAL PAIN UPPER [None]
  - ANAEMIA [None]
  - BONE MARROW FAILURE [None]
  - CELLULITIS [None]
  - DECREASED APPETITE [None]
  - DYSPNOEA [None]
  - ENTEROCOCCAL INFECTION [None]
  - EXTREMITY NECROSIS [None]
  - FAECES DISCOLOURED [None]
  - FINGER AMPUTATION [None]
  - FREQUENT BOWEL MOVEMENTS [None]
  - GASTROINTESTINAL HAEMORRHAGE [None]
  - INFECTION [None]
  - LACERATION [None]
  - LETHARGY [None]
  - MELAENA [None]
  - NAUSEA [None]
  - NEUTROPENIA [None]
  - PANCYTOPENIA [None]
  - PETECHIAE [None]
  - PSEUDOMONAS INFECTION [None]
  - RETCHING [None]
  - THROMBOCYTOPENIA [None]
  - VOMITING [None]
